FAERS Safety Report 16219859 (Version 1)
Quarter: 2019Q2

REPORT INFORMATION
  Report Type: Spontaneous
  Country: DE (occurrence: DE)
  Receive Date: 20190420
  Receipt Date: 20190420
  Transmission Date: 20190711
  Serious: Yes (Other)
  Sender: FDA-Public Use
  Company Number: DE-SUN PHARMACEUTICAL INDUSTRIES LTD-2019RR-205622

PATIENT
  Sex: Female

DRUGS (1)
  1. PANTOPRAZOL BASICS [Suspect]
     Active Substance: PANTOPRAZOLE SODIUM
     Indication: DYSPEPSIA
     Dosage: EVERY DAY
     Route: 065

REACTIONS (8)
  - Quality of life decreased [Unknown]
  - Swollen tongue [Unknown]
  - Paraesthesia [Unknown]
  - Poor quality sleep [Unknown]
  - Nightmare [Unknown]
  - Arthralgia [Unknown]
  - Treatment noncompliance [Unknown]
  - Eye irritation [Unknown]
